FAERS Safety Report 5932053-3 (Version None)
Quarter: 2008Q4

REPORT INFORMATION
  Report Type: 
  Country: None (occurrence: None)
  Receive Date: 20081027
  Receipt Date: 20081015
  Transmission Date: 20090506
  Serious: Yes (Hospitalization, Other)
  Sender: FDA-Public Use
  Company Number: AU-PFIZER INC-2008088577

PATIENT
  Sex: Female
  Weight: 61.6 kg

DRUGS (8)
  1. SERTRALINE [Suspect]
     Indication: DEPRESSION
     Route: 048
  2. INDAPAMIDE [Suspect]
     Indication: HYPERTENSION
     Route: 048
  3. PERINDOPRIL [Suspect]
     Indication: HYPERTENSION
     Route: 048
  4. MAXOLON [Concomitant]
  5. MOCLOBEMIDE [Concomitant]
  6. ACETAMINOPHEN [Concomitant]
  7. TEMAZEPAM [Concomitant]
  8. LEVOTHYROXINE SODIUM [Concomitant]

REACTIONS (7)
  - ANOREXIA [None]
  - CONFUSIONAL STATE [None]
  - DIARRHOEA [None]
  - HYPONATRAEMIA [None]
  - LETHARGY [None]
  - NAUSEA [None]
  - VOMITING [None]
